FAERS Safety Report 14907915 (Version 1)
Quarter: 2018Q2

REPORT INFORMATION
  Report Type: Spontaneous
  Country: US (occurrence: US)
  Receive Date: 20180429
  Receipt Date: 20180429
  Transmission Date: 20180711
  Serious: Yes (Hospitalization, Other)
  Sender: FDA-Public Use
  Company Number: None

PATIENT
  Age: 44 Year
  Sex: Male
  Weight: 65.8 kg

DRUGS (2)
  1. CIALIS [Suspect]
     Active Substance: TADALAFIL
  2. EXTREME RHINO 69 50000 [Suspect]
     Active Substance: DIETARY SUPPLEMENT
     Indication: ERECTILE DYSFUNCTION
     Route: 048
     Dates: start: 20180428, end: 20180428

REACTIONS (6)
  - Asthenia [None]
  - Toxicity to various agents [None]
  - Chest pain [None]
  - Overdose [None]
  - Hypotension [None]
  - Fatigue [None]

NARRATIVE: CASE EVENT DATE: 20180428
